FAERS Safety Report 7955106-7 (Version None)
Quarter: 2011Q4

REPORT INFORMATION
  Report Type: 
  Country: None (occurrence: None)
  Receive Date: 20111202
  Receipt Date: 20111128
  Transmission Date: 20120403
  Serious: Yes (Death, Hospitalization)
  Sender: FDA-Public Use
  Company Number: US-CELGENEUS-163-21880-11113833

PATIENT
  Sex: Male
  Weight: 59.1 kg

DRUGS (2)
  1. REVLIMID [Suspect]
     Dosage: 25 MILLIGRAM
     Route: 048
     Dates: start: 20111021, end: 20111116
  2. EVEROLIMUS [Suspect]
     Dosage: 10 MILLIGRAM
     Route: 048
     Dates: start: 20111021, end: 20111116

REACTIONS (2)
  - DEATH [None]
  - DYSPNOEA [None]
